FAERS Safety Report 14419435 (Version 1)
Quarter: 2018Q1

REPORT INFORMATION
  Report Type: Report from Study
  Country: JP (occurrence: JP)
  Receive Date: 20180122
  Receipt Date: 20180122
  Transmission Date: 20180509
  Serious: Yes (Other)
  Sender: FDA-Public Use
  Company Number: JP-ASTELLAS-2018US004201

PATIENT

DRUGS (2)
  1. DOCETAXEL. [Suspect]
     Active Substance: DOCETAXEL
     Indication: NON-SMALL CELL LUNG CANCER RECURRENT
     Dosage: 60 MG/M2 ON DAY 1
     Route: 065
  2. ERLOTINIB [Suspect]
     Active Substance: ERLOTINIB
     Indication: NON-SMALL CELL LUNG CANCER RECURRENT
     Dosage: 150 MG ON DAYS 2 TO 16
     Route: 065

REACTIONS (5)
  - Infection [Unknown]
  - Febrile neutropenia [Unknown]
  - Stomatitis [Unknown]
  - Neutropenia [Unknown]
  - Decreased appetite [Unknown]
